FAERS Safety Report 7977679-0 (Version None)
Quarter: 2011Q4

REPORT INFORMATION
  Report Type: 
  Country: None (occurrence: None)
  Receive Date: 20111214
  Receipt Date: 20111127
  Transmission Date: 20120403
  Serious: No
  Sender: FDA-Public Use
  Company Number: US-AMGEN-USASP2011052428

PATIENT
  Age: 63 Year
  Sex: Female

DRUGS (4)
  1. PREDNISOLONE [Concomitant]
     Indication: RHEUMATOID ARTHRITIS
     Dosage: 5 MG, BID
     Route: 048
     Dates: start: 20070101
  2. ENBREL [Suspect]
     Indication: RHEUMATOID ARTHRITIS
     Dosage: 50 MG, QWK
     Route: 058
     Dates: start: 20090801
  3. ASPIRIN [Concomitant]
     Indication: RHEUMATOID ARTHRITIS
     Dosage: 81 MG, QD
     Route: 048
     Dates: start: 20070101
  4. METHOTREXATE [Concomitant]
     Indication: RHEUMATOID ARTHRITIS
     Dosage: 2.5 MG, QWK
     Route: 048
     Dates: start: 20070101

REACTIONS (3)
  - HAEMORRHOIDS [None]
  - HAEMATOCHEZIA [None]
  - INJECTION SITE HAEMORRHAGE [None]
